FAERS Safety Report 4338806-X (Version None)
Quarter: 2004Q2

REPORT INFORMATION
  Report Type: 
  Country: None (occurrence: None)
  Receive Date: 20040409
  Receipt Date: 20040403
  Transmission Date: 20050107
  Serious: Yes (Other)
  Sender: FDA-Public Use
  Company Number: PL-JNJFOC-20040400746

PATIENT
  Age: 66 Year
  Sex: Female

DRUGS (3)
  1. ABCIXIMAB -BLINDED (ABCIXIMAB) INJECTION [Suspect]
     Indication: ACUTE MYOCARDIAL INFARCTION
     Dosage: INTRAVENOUS
     Route: 042
     Dates: start: 20040402, end: 20040402
  2. RETEPLASE (RETEPLASE) LYOPHILIZED [Suspect]
     Indication: ACUTE MYOCARDIAL INFARCTION
     Dosage: INTRAVENOUS
     Route: 042
     Dates: start: 20040402, end: 20040402
  3. PLACEBO (PLACEBO) INJECTION [Suspect]
     Indication: ACUTE MYOCARDIAL INFARCTION
     Dosage: INTRAVENOUS
     Route: 042
     Dates: start: 20040402, end: 20040402

REACTIONS (4)
  - DRUG INTERACTION [None]
  - HAEMATOMA [None]
  - PUNCTURE SITE HAEMORRHAGE [None]
  - THROMBOCYTOPENIA [None]
